FAERS Safety Report 8943200 (Version 1)
Quarter: 2012Q4

REPORT INFORMATION
  Report Type: 
  Country: US (occurrence: US)
  Receive Date: 20121204
  Receipt Date: 20121204
  Transmission Date: 20130627
  Serious: No
  Sender: FDA-Public Use
  Company Number: US-PFIZER INC-2012302023

PATIENT
  Age: 57 Year
  Sex: Female
  Weight: 64.4 kg

DRUGS (2)
  1. ADVIL [Suspect]
     Indication: HEADACHE
     Dosage: UNK, as needed
     Route: 048
     Dates: end: 20121112
  2. HYDROCHLOROTHIAZIDE/TRIAMTERENE [Concomitant]
     Indication: BLOOD PRESSURE HIGH
     Dosage: UNK

REACTIONS (2)
  - Lip swelling [Unknown]
  - Eye swelling [Unknown]
